FAERS Safety Report 5992254-5 (Version None)
Quarter: 2008Q4

REPORT INFORMATION
  Report Type: 
  Country: None (occurrence: None)
  Receive Date: 20081202
  Receipt Date: 20080515
  Transmission Date: 20090506
  Serious: Yes (Disabling)
  Sender: FDA-Public Use
  Company Number: WAES 0805USA03647

PATIENT
  Age: 83 Year
  Sex: Female
  Weight: 67.1324 kg

DRUGS (10)
  1. FOSAMAX [Suspect]
     Indication: OSTEOPOROSIS
     Dosage: 10 MG/DAILY/PO
     Route: 048
     Dates: start: 20011127, end: 20080201
  2. ARAVA [Concomitant]
  3. COZAAR [Concomitant]
  4. PLAVIX [Concomitant]
  5. ATENOLOL [Concomitant]
  6. FUROSEMIDE [Concomitant]
  7. POTASSIUM (UNSPECIFIED) [Concomitant]
  8. SIMVASTATIN [Concomitant]
  9. TRAMADOL HYDROCHLORIDE [Concomitant]
  10. VERAPAMIL [Concomitant]

REACTIONS (2)
  - BACK PAIN [None]
  - OSTEONECROSIS [None]
